FAERS Safety Report 13129937 (Version 1)
Quarter: 2017Q1

REPORT INFORMATION
  Report Type: Spontaneous
  Country: US (occurrence: US)
  Receive Date: 20170118
  Receipt Date: 20170118
  Transmission Date: 20170428
  Serious: Yes (Hospitalization)
  Sender: FDA-Public Use
  Company Number: None

PATIENT
  Age: 2 Year
  Sex: Female
  Weight: 11.2 kg

DRUGS (6)
  1. CYCLOPHOSPHAMIDE. [Suspect]
     Active Substance: CYCLOPHOSPHAMIDE
     Dates: end: 20160106
  2. CYTARABINE. [Suspect]
     Active Substance: CYTARABINE
     Dates: end: 20170109
  3. MERCAPTOPURINE. [Suspect]
     Active Substance: MERCAPTOPURINE
     Dates: end: 20161004
  4. METHOTREXATE. [Suspect]
     Active Substance: METHOTREXATE
     Dates: end: 20161011
  5. ONCASPAR [Suspect]
     Active Substance: PEGASPARGASE
     Dates: end: 20161004
  6. VINCRISTINE SULFATE. [Suspect]
     Active Substance: VINCRISTINE SULFATE
     Dates: end: 20161227

REACTIONS (4)
  - Tachycardia [None]
  - X-ray abnormal [None]
  - Abdominal distension [None]
  - Dyspnoea [None]

NARRATIVE: CASE EVENT DATE: 20170112
